FAERS Safety Report 23977251 (Version 1)
Quarter: 2024Q2

REPORT INFORMATION
  Report Type: Spontaneous
  Country: CN (occurrence: CN)
  Receive Date: 20240614
  Receipt Date: 20240614
  Transmission Date: 20240716
  Serious: Yes (Other)
  Sender: FDA-Public Use
  Company Number: CN-009507513-2406CHN003461

PATIENT
  Age: 22 Year
  Sex: Male
  Weight: 36 kg

DRUGS (2)
  1. CILASTATIN SODIUM\IMIPENEM [Suspect]
     Active Substance: CILASTATIN SODIUM\IMIPENEM
     Indication: Cholecystitis
     Dosage: 0.5 G (ALSO REPORTED AS 1 ML), Q12H, IV DRIP
     Route: 041
     Dates: start: 20240607, end: 20240607
  2. SODIUM CHLORIDE [Concomitant]
     Active Substance: SODIUM CHLORIDE
     Indication: Medication dilution
     Dosage: 100 ML, Q12H, IV DRIP
     Route: 041
     Dates: start: 20240607, end: 20240607

REACTIONS (2)
  - Epilepsy [Recovering/Resolving]
  - Fatigue [Unknown]

NARRATIVE: CASE EVENT DATE: 20240607
